FAERS Safety Report 14408876 (Version 1)
Quarter: 2018Q1

REPORT INFORMATION
  Report Type: Spontaneous
  Country: ES (occurrence: ES)
  Receive Date: 20180119
  Receipt Date: 20180119
  Transmission Date: 20180509
  Serious: Yes (Hospitalization)
  Sender: FDA-Public Use
  Company Number: ES-SUN PHARMACEUTICAL INDUSTRIES LTD-2018R1-160458

PATIENT
  Age: 60 Year
  Sex: Female

DRUGS (6)
  1. CARBAMAZEPINA [Suspect]
     Active Substance: CARBAMAZEPINE
     Indication: FIBROMYALGIA
     Dosage: UNK
     Route: 048
  2. METAMIZOL [Suspect]
     Active Substance: METAMIZOLE SODIUM
     Indication: PYREXIA
     Dosage: UNK
     Route: 048
  3. PARACETAMOL [Suspect]
     Active Substance: ACETAMINOPHEN
     Indication: PYREXIA
     Dosage: UNK
     Route: 048
  4. CLONAZEPAM BIOMED 2 MG COMPRIMIDOS EFG , 60 COMPRIMIDOS [Concomitant]
     Indication: FIBROMYALGIA
     Dosage: 0-0-1/2
     Route: 048
     Dates: start: 2010
  5. DICLOFENACO [Concomitant]
     Active Substance: DICLOFENAC
     Indication: FIBROMYALGIA
     Dosage: UNK
     Route: 048
     Dates: start: 2010
  6. EUTIROX 150 MICROGRAMOS COMPRIMIDOS, 28 COMPRIMIDOS [Concomitant]
     Indication: HYPOTHYROIDISM
     Dosage: UNK
     Route: 048

REACTIONS (1)
  - Drug reaction with eosinophilia and systemic symptoms [Recovered/Resolved]

NARRATIVE: CASE EVENT DATE: 20170526
